FAERS Safety Report 7062484-2 (Version None)
Quarter: 2010Q4

REPORT INFORMATION
  Report Type: 
  Country: None (occurrence: None)
  Receive Date: 20101026
  Receipt Date: 20091125
  Transmission Date: 20110411
  Serious: No
  Sender: FDA-Public Use
  Company Number: US-PFIZER INC-2009303229

PATIENT
  Sex: Female
  Weight: 81.63 kg

DRUGS (5)
  1. LIPITOR [Interacting]
     Indication: BLOOD CHOLESTEROL INCREASED
     Dosage: 10 MG, 1X/DAY
     Route: 048
     Dates: end: 20091124
  2. AROMASIN [Interacting]
     Indication: BREAST CANCER
     Dosage: 25 MG, 1X/DAY
     Route: 048
     Dates: start: 20090914, end: 20091124
  3. FEMARA [Suspect]
     Indication: NEOPLASM PROPHYLAXIS
     Dosage: UNK
     Route: 048
     Dates: start: 20090101, end: 20090101
  4. SYNTHROID [Concomitant]
     Dosage: UNK
  5. LUPRON [Concomitant]
     Indication: MENOPAUSE
     Dosage: UNK

REACTIONS (3)
  - DRUG INTERACTION [None]
  - HOT FLUSH [None]
  - LIVER FUNCTION TEST ABNORMAL [None]
